APPROVED DRUG PRODUCT: MOMETASONE FUROATE
Active Ingredient: MOMETASONE FUROATE
Strength: 0.1%
Dosage Form/Route: OINTMENT;TOPICAL
Application: A207899 | Product #001 | TE Code: AB
Applicant: TORRENT PHARMACEUTICALS LTD
Approved: Jul 13, 2018 | RLD: No | RS: No | Type: RX